FAERS Safety Report 11990959 (Version 13)
Quarter: 2019Q3

REPORT INFORMATION
  Report Type: Report from Study
  Country: CN (occurrence: CN)
  Receive Date: 20160202
  Receipt Date: 20190919
  Transmission Date: 20191004
  Serious: Yes (Other)
  Sender: FDA-Public Use
  Company Number: PHHY2015CN142369

PATIENT
  Age: 58 Year
  Sex: Male
  Weight: 58.7 kg

DRUGS (119)
  1. MYFORTIC [Suspect]
     Active Substance: MYCOPHENOLATE SODIUM
     Indication: PROPHYLAXIS AGAINST TRANSPLANT REJECTION
     Dosage: 1120 MG, QD
     Route: 065
     Dates: start: 20150911, end: 20150913
  2. METHYLPREDNISOLONE. [Suspect]
     Active Substance: METHYLPREDNISOLONE
     Dosage: 400 MG, QD
     Route: 065
     Dates: start: 20150918, end: 20150918
  3. PREDNISONE. [Suspect]
     Active Substance: PREDNISONE
     Indication: KIDNEY TRANSPLANT REJECTION
     Dosage: 30 MG, QD
     Route: 065
     Dates: start: 20150913, end: 20151004
  4. PREDNISONE ACETATE [Concomitant]
     Active Substance: PREDNISONE ACETATE
     Dosage: 30 MG, QD
     Route: 065
     Dates: start: 20151005
  5. SODIUM BICARBONATE. [Concomitant]
     Active Substance: SODIUM BICARBONATE
     Indication: PROPHYLAXIS
     Dosage: 1500 MG, BID
     Route: 048
     Dates: start: 20151202, end: 20151230
  6. OMEPRAZOLE SODIUM [Concomitant]
     Active Substance: OMEPRAZOLE SODIUM
     Indication: GASTRIC ULCER
     Dosage: 40 MG, QD
     Route: 042
     Dates: start: 20150908, end: 20150926
  7. BUTIOL//DEXAMETHASONE SODIUM PHOSPHATE [Concomitant]
     Indication: IMMUNOSUPPRESSION
  8. METHYLPREDNISOLONE W/SUCCINATE SODIUM [Concomitant]
     Active Substance: METHYLPREDNISOLONE SODIUM SUCCINATE
     Indication: IMMUNOSUPPRESSION
  9. METOPROLOL TARTRATE. [Concomitant]
     Active Substance: METOPROLOL TARTRATE
     Dosage: 25 MG, BID
     Route: 048
     Dates: start: 20151202
  10. EDOSTENE [Concomitant]
     Indication: CONSTIPATION
     Dosage: 1200 MG, QD
     Route: 048
     Dates: start: 20150910, end: 20151004
  11. LANSOPRAZOLE. [Concomitant]
     Active Substance: LANSOPRAZOLE
     Indication: DUODENAL ULCER
     Dosage: 30 MG, QD
     Route: 065
     Dates: start: 20150908, end: 20150908
  12. FUROSEMIDE. [Concomitant]
     Active Substance: FUROSEMIDE
     Dosage: 20 MG, BID
     Route: 042
     Dates: start: 20150927, end: 20150927
  13. MYFORTIC [Suspect]
     Active Substance: MYCOPHENOLATE SODIUM
     Indication: RENAL TRANSPLANT
     Dosage: 1440 MG, QD
     Route: 065
     Dates: start: 20150908, end: 20150911
  14. IPRATROPIUM BROMIDE. [Concomitant]
     Active Substance: IPRATROPIUM BROMIDE
     Indication: PROPHYLAXIS
     Dosage: 0.5 MG, BID
     Route: 055
     Dates: start: 20150908, end: 20151004
  15. ADALAT [Concomitant]
     Active Substance: NIFEDIPINE
     Indication: HYPERTENSION
     Dosage: 30 MG, QD
     Route: 065
  16. METHYLPREDNISOLONE W/SUCCINATE SODIUM [Concomitant]
     Active Substance: METHYLPREDNISOLONE SODIUM SUCCINATE
     Indication: PROPHYLAXIS AGAINST TRANSPLANT REJECTION
     Dosage: 400 MG, QD
     Route: 065
     Dates: start: 20150918, end: 20150918
  17. DOXAZIN//DOXAZOSIN MESILATE [Concomitant]
     Dosage: 4 MG, BID
     Route: 048
     Dates: start: 20151005, end: 20151102
  18. AMCAL VITAMIN C [Concomitant]
     Indication: NUTRITIONAL SUPPLEMENTATION
     Dosage: 2000 MG, QD
     Route: 042
     Dates: start: 20150908, end: 20150916
  19. SULODEXIDE [Concomitant]
     Active Substance: SULODEXIDE
     Indication: THROMBOSIS
     Dosage: 250 LSU, BID
     Route: 065
     Dates: start: 20150910
  20. SULODEXIDE [Concomitant]
     Active Substance: SULODEXIDE
     Indication: PROPHYLAXIS
     Dosage: 250 LSU, BID
     Route: 065
     Dates: start: 20151005
  21. SULODEXIDE [Concomitant]
     Active Substance: SULODEXIDE
     Dosage: 1 DF, BID
     Route: 048
     Dates: start: 20150926, end: 20150926
  22. NIFEDIPINE. [Concomitant]
     Active Substance: NIFEDIPINE
     Dosage: 300 MG, BID
     Route: 048
     Dates: start: 20151202
  23. FUROSEMIDE. [Concomitant]
     Active Substance: FUROSEMIDE
     Dosage: 20 MG, BID
     Route: 042
     Dates: start: 20151003, end: 20151003
  24. FUROSEMIDE. [Concomitant]
     Active Substance: FUROSEMIDE
     Dosage: 20 MG, BID
     Route: 042
     Dates: start: 20151005, end: 20151024
  25. FUROSEMIDE. [Concomitant]
     Active Substance: FUROSEMIDE
     Dosage: 20 MG, BID
     Route: 042
     Dates: start: 20150919, end: 20150919
  26. FUROSEMIDE. [Concomitant]
     Active Substance: FUROSEMIDE
     Dosage: 40 MG, QD
     Route: 065
     Dates: start: 20150908, end: 20150910
  27. AMPHOTERICIN B, LIPOSOME [Concomitant]
     Active Substance: AMPHOTERICIN B
     Indication: LUNG INFECTION
     Dosage: 10 MG, QD
     Route: 042
     Dates: start: 20151231, end: 20160106
  28. AMPHOTERICIN B, LIPOSOME [Concomitant]
     Active Substance: AMPHOTERICIN B
     Dosage: 15 MG, QD
     Route: 042
     Dates: start: 20160106, end: 20160108
  29. CICLOSPORIN [Suspect]
     Active Substance: CYCLOSPORINE
     Indication: PRODUCT USED FOR UNKNOWN INDICATION
     Dosage: 200 MG, QD
     Route: 065
     Dates: start: 20150908, end: 20151005
  30. CICLOSPORIN [Suspect]
     Active Substance: CYCLOSPORINE
     Dosage: 175 MG, QD
     Route: 065
     Dates: start: 20151218, end: 20151230
  31. BASILIXIMAB [Suspect]
     Active Substance: BASILIXIMAB
     Indication: RENAL TRANSPLANT
     Dosage: 20 MG, QD
     Route: 065
     Dates: start: 20150911, end: 20150911
  32. PREDNISONE. [Suspect]
     Active Substance: PREDNISONE
     Indication: IMMUNOSUPPRESSION
     Dosage: 20 MG, QD
     Route: 065
     Dates: start: 20151231, end: 20160104
  33. ALBUMIN HUMAN [Concomitant]
     Active Substance: ALBUMIN HUMAN
     Dosage: 12500 MG, QD
     Route: 042
     Dates: start: 20151007, end: 20151014
  34. LIGUSTRAZINE [Concomitant]
     Active Substance: LIGUSTRAZINE
     Indication: PROPHYLAXIS
     Dosage: 120 MG, QD
     Route: 042
     Dates: start: 20150921, end: 20151004
  35. ALOSTIN//ALPROSTADIL [Concomitant]
     Dosage: 0.01 MG, BID
     Route: 065
     Dates: start: 20151005, end: 20151005
  36. DOXAZIN//DOXAZOSIN MESILATE [Concomitant]
     Dosage: 4 MG, BID
     Route: 048
     Dates: start: 20150917, end: 20151004
  37. CALCII CHLORIDUM//CALCIUM CHLORIDE [Concomitant]
     Dosage: 4000 MG, QD
     Route: 042
     Dates: start: 20150917, end: 20150917
  38. ULINASTATIN [Concomitant]
     Active Substance: ULINASTATIN
     Indication: PROPHYLAXIS
     Dosage: 20 WU, QD
     Route: 042
     Dates: start: 20150909, end: 20150930
  39. NITROGLYCERIN. [Concomitant]
     Active Substance: NITROGLYCERIN
     Indication: PROPHYLAXIS
     Dosage: 10 MG, QD
     Route: 042
     Dates: start: 20150908, end: 20150909
  40. NIFEDIPINE. [Concomitant]
     Active Substance: NIFEDIPINE
     Dosage: 10 MG, QD
     Route: 048
     Dates: start: 20150912, end: 20150912
  41. DOPAMINE [Concomitant]
     Active Substance: DOPAMINE HYDROCHLORIDE
     Indication: PROPHYLAXIS
     Dosage: 20 MG, QD
     Route: 042
     Dates: start: 20150910, end: 20150910
  42. INSULIN [Concomitant]
     Active Substance: INSULIN NOS
     Indication: BLOOD GLUCOSE ABNORMAL
     Dosage: 4 IU, BID
     Route: 042
     Dates: start: 20150908, end: 20150909
  43. FUROSEMIDE. [Concomitant]
     Active Substance: FUROSEMIDE
     Dosage: 40 MG, QD
     Route: 042
     Dates: start: 20150923, end: 20150923
  44. AMBROXOL [Concomitant]
     Active Substance: AMBROXOL
     Indication: PROPHYLAXIS
     Dosage: 15 MG, BID
     Route: 065
  45. CEFOPERAZONE SODIUM W/TAZOBACTAM [Concomitant]
     Indication: PRODUCT USED FOR UNKNOWN INDICATION
     Dosage: 2 G, BID
     Route: 065
     Dates: start: 20150908
  46. AMBROXOL HYDROCHLORIDE [Concomitant]
     Active Substance: AMBROXOL HYDROCHLORIDE
     Indication: PRODUCTIVE COUGH
     Dosage: 15 MG, BID
     Route: 055
     Dates: start: 20151005
  47. MYCOPHENOLATE SODIUM [Concomitant]
     Active Substance: MYCOPHENOLATE SODIUM
     Indication: PRODUCT USED FOR UNKNOWN INDICATION
     Dosage: 1440 MG/DL, UNK
     Route: 065
     Dates: start: 20150908, end: 20150911
  48. CICLOSPORIN [Suspect]
     Active Substance: CYCLOSPORINE
     Dosage: 200 MG, QD
     Route: 065
     Dates: start: 20151202, end: 20151218
  49. ALBUMIN HUMAN [Concomitant]
     Active Substance: ALBUMIN HUMAN
     Dosage: 12500 MG,QD
     Route: 042
     Dates: start: 20151005, end: 20151005
  50. SODIUM BICARBONATE. [Concomitant]
     Active Substance: SODIUM BICARBONATE
     Indication: NUTRITIONAL SUPPLEMENTATION
     Dosage: 150 ML, QD
     Route: 042
     Dates: start: 20150908, end: 20150916
  51. SODIUM BICARBONATE. [Concomitant]
     Active Substance: SODIUM BICARBONATE
     Indication: ACID BASE BALANCE
  52. LIGUSTRAZINE [Concomitant]
     Active Substance: LIGUSTRAZINE
     Indication: HYPERTENSION
     Dosage: 0.1 MG, BID
     Route: 048
     Dates: start: 20151005, end: 20151005
  53. BUTIOL//DEXAMETHASONE SODIUM PHOSPHATE [Concomitant]
     Indication: ANTIINFLAMMATORY THERAPY
     Dosage: 5 MG, QD
     Route: 042
     Dates: start: 20150911, end: 20150911
  54. ALOSTIN//ALPROSTADIL [Concomitant]
     Indication: HYPERTENSION
     Dosage: 0.02 MG, BID
     Route: 065
     Dates: start: 20151001, end: 20151001
  55. DOXAZIN//DOXAZOSIN MESILATE [Concomitant]
     Indication: HYPERTENSION
     Dosage: 4 MG, BID
     Route: 048
     Dates: start: 20150917, end: 20150917
  56. ADVACAL//CALCIUM [Concomitant]
     Dosage: 4000 MG, QD
     Route: 041
     Dates: start: 20150917, end: 20150917
  57. PANTOPRAZOLE [Concomitant]
     Active Substance: PANTOPRAZOLE
     Dosage: 40 MG, QD
     Route: 048
     Dates: start: 20151202
  58. AMPHOTERICIN B. [Concomitant]
     Active Substance: AMPHOTERICIN B
     Indication: ANTIFUNGAL PROPHYLAXIS
     Dosage: 10 MG, QD
     Route: 042
     Dates: start: 20150908, end: 20150921
  59. LANSOPRAZOLE. [Concomitant]
     Active Substance: LANSOPRAZOLE
     Indication: HAEMORRHAGE
  60. FUROSEMIDE. [Concomitant]
     Active Substance: FUROSEMIDE
     Dosage: 20 MG, QD
     Route: 042
     Dates: start: 20150920, end: 20150920
  61. FUROSEMIDE. [Concomitant]
     Active Substance: FUROSEMIDE
     Dosage: 200 MG, QD
     Route: 042
     Dates: start: 20150910, end: 20150910
  62. MYCOPHENOLATE SODIUM [Concomitant]
     Active Substance: MYCOPHENOLATE SODIUM
     Dosage: 1080 MG/DL, UNK
     Route: 065
     Dates: start: 20151005, end: 20151005
  63. MYCOPHENOLATE SODIUM [Concomitant]
     Active Substance: MYCOPHENOLATE SODIUM
     Dosage: 1120 MG/DL, UNK
     Route: 065
     Dates: start: 20150911, end: 20150913
  64. MYCOPHENOLATE SODIUM [Concomitant]
     Active Substance: MYCOPHENOLATE SODIUM
     Dosage: 720 MG/DL, UNK
     Route: 065
     Dates: start: 20151005, end: 20151201
  65. BASILIXIMAB [Suspect]
     Active Substance: BASILIXIMAB
     Indication: PROPHYLAXIS AGAINST TRANSPLANT REJECTION
     Dosage: 20 MG, QD
     Route: 065
     Dates: start: 20150908, end: 20150908
  66. INOSINE [Concomitant]
     Active Substance: INOSINE
     Indication: NUTRITIONAL SUPPLEMENTATION
     Dosage: 1000 MG, QD
     Route: 042
     Dates: start: 20150908, end: 20150916
  67. METHYLPREDNISOLONE W/SUCCINATE SODIUM [Concomitant]
     Active Substance: METHYLPREDNISOLONE SODIUM SUCCINATE
     Indication: ANTIINFLAMMATORY THERAPY
     Dosage: 500 MG, QD
     Route: 065
     Dates: start: 20150908, end: 20150911
  68. METHYLPREDNISOLONE W/SUCCINATE SODIUM [Concomitant]
     Active Substance: METHYLPREDNISOLONE SODIUM SUCCINATE
     Indication: ANTIALLERGIC THERAPY
     Dosage: 300 MG, QD
     Route: 065
     Dates: start: 20150919, end: 20150920
  69. ALOSTIN//ALPROSTADIL [Concomitant]
     Indication: THROMBOSIS PROPHYLAXIS
     Dosage: 10 MG, BID
     Route: 042
     Dates: start: 20150909, end: 20150921
  70. CALCII CHLORIDUM//CALCIUM CHLORIDE [Concomitant]
     Dosage: 4000 UNK, UNK
     Route: 042
     Dates: start: 20150920, end: 20150920
  71. SULODEXIDE [Concomitant]
     Active Substance: SULODEXIDE
     Dosage: 1 DF, BID
     Route: 048
     Dates: start: 20150910, end: 20150926
  72. SULODEXIDE [Concomitant]
     Active Substance: SULODEXIDE
     Dosage: 1 DF, BID
     Route: 048
     Dates: start: 20151005, end: 20151102
  73. SULODEXIDE [Concomitant]
     Active Substance: SULODEXIDE
     Dosage: 250 LSU, BID
     Route: 048
     Dates: start: 20151202
  74. NIFEDIPINE. [Concomitant]
     Active Substance: NIFEDIPINE
     Indication: HYPERTENSION
     Dosage: 0.03 G, QD
     Route: 048
     Dates: start: 20150910, end: 20151004
  75. FUROSEMIDE. [Concomitant]
     Active Substance: FUROSEMIDE
     Indication: POLYURIA
     Dosage: 20 MG, BID
     Route: 042
     Dates: start: 20150923, end: 20150923
  76. AMBROXOL HYDROCHLORIDE [Concomitant]
     Active Substance: AMBROXOL HYDROCHLORIDE
     Indication: PROPHYLAXIS
     Dosage: 15 MG, BID
     Route: 055
     Dates: start: 20150908, end: 20151004
  77. CASPOFUNGIN ACETATE. [Concomitant]
     Active Substance: CASPOFUNGIN ACETATE
     Indication: LUNG INFECTION
     Dosage: 50 MG, QD
     Route: 042
     Dates: start: 20151231
  78. MEROPENEM. [Concomitant]
     Active Substance: MEROPENEM
     Indication: LUNG INFECTION
     Dosage: 500 MG, TID
     Route: 042
     Dates: start: 20151231, end: 20160104
  79. MYFORTIC [Suspect]
     Active Substance: MYCOPHENOLATE SODIUM
     Dosage: 1080 MG, QD
     Route: 065
     Dates: start: 20151005, end: 20151005
  80. MYFORTIC [Suspect]
     Active Substance: MYCOPHENOLATE SODIUM
     Dosage: 720 MG, QD
     Route: 065
     Dates: start: 20151006, end: 20151224
  81. METHYLPREDNISOLONE. [Suspect]
     Active Substance: METHYLPREDNISOLONE
     Indication: KIDNEY TRANSPLANT REJECTION
     Dosage: 500 MG, QD
     Route: 065
     Dates: start: 20150908, end: 20150911
  82. PREDNISONE. [Suspect]
     Active Substance: PREDNISONE
     Indication: ANTIINFLAMMATORY THERAPY
     Dosage: 60 MG, QD
     Route: 065
     Dates: start: 20151005, end: 20151201
  83. ALBUMIN HUMAN [Concomitant]
     Active Substance: ALBUMIN HUMAN
     Indication: NUTRITIONAL SUPPLEMENTATION
     Dosage: 12500 MG, QD
     Route: 042
     Dates: start: 20151002, end: 20151004
  84. METOPROLOL TARTRATE. [Concomitant]
     Active Substance: METOPROLOL TARTRATE
     Indication: HYPERTENSION
     Dosage: 25 MG, BID
     Route: 048
     Dates: start: 20150909, end: 20151004
  85. DOXAZIN//DOXAZOSIN MESILATE [Concomitant]
     Dosage: 4 MG, BID
     Route: 048
     Dates: start: 20151202
  86. CALCII CHLORIDUM//CALCIUM CHLORIDE [Concomitant]
     Dosage: 4000 MG, QD
     Route: 065
     Dates: start: 20150920, end: 20150920
  87. LACTULOSA [Concomitant]
     Active Substance: LACTULOSE
     Indication: CONSTIPATION PROPHYLAXIS
     Dosage: 66700 MG, QD
     Route: 048
     Dates: start: 20151009, end: 20151009
  88. CEFOPERAZONE SODIUM W/SULBACTAM [Concomitant]
     Active Substance: CEFOPERAZONE SODIUM\SULBACTAM
     Indication: PROPHYLAXIS
     Dosage: 2 G, BID
     Route: 042
     Dates: start: 20150908, end: 20150921
  89. FUROSEMIDE. [Concomitant]
     Active Substance: FUROSEMIDE
     Indication: ACUTE KIDNEY INJURY
     Dosage: 40 MG, BID
     Route: 042
     Dates: start: 20150921, end: 20150921
  90. FUROSEMIDE. [Concomitant]
     Active Substance: FUROSEMIDE
     Indication: HYPERTENSION
     Dosage: 40 MG, BID
     Route: 042
  91. CARDURA [Concomitant]
     Active Substance: DOXAZOSIN MESYLATE
     Indication: HYPERTENSION
     Dosage: 4 MG, BID
     Route: 065
     Dates: start: 20151005
  92. AMPHOTERICIN B, LIPOSOME [Concomitant]
     Active Substance: AMPHOTERICIN B
     Dosage: 20 MG, QD
     Route: 042
     Dates: start: 20160109
  93. MYCOPHENOLATE SODIUM [Concomitant]
     Active Substance: MYCOPHENOLATE SODIUM
     Dosage: 720 MG/DL, UNK
     Route: 065
     Dates: start: 20151202
  94. MYFORTIC [Suspect]
     Active Substance: MYCOPHENOLATE SODIUM
     Dosage: 1080 MG, QD
     Route: 065
     Dates: start: 20150914
  95. CICLOSPORIN [Suspect]
     Active Substance: CYCLOSPORINE
     Dosage: 250 MG, QD
     Route: 065
     Dates: start: 20151005, end: 20151201
  96. METHYLPREDNISOLONE. [Suspect]
     Active Substance: METHYLPREDNISOLONE
     Dosage: 400 MG, QD
     Route: 065
     Dates: start: 20151231, end: 20160104
  97. IPRATROPIUM BROMIDE. [Concomitant]
     Active Substance: IPRATROPIUM BROMIDE
     Dosage: 0.5 MG, BID
     Route: 055
     Dates: start: 20151005, end: 20151102
  98. BUTIOL//DEXAMETHASONE SODIUM PHOSPHATE [Concomitant]
     Indication: HYPERSENSITIVITY
  99. METOPROLOL TARTRATE. [Concomitant]
     Active Substance: METOPROLOL TARTRATE
     Dosage: 25 MG, BID
     Route: 048
     Dates: start: 20151005, end: 20151102
  100. ADVACAL//CALCIUM [Concomitant]
     Dosage: 4000 MG, QD
     Route: 042
     Dates: start: 20150920, end: 20150920
  101. PANTOPRAZOLE [Concomitant]
     Active Substance: PANTOPRAZOLE
     Indication: PROPHYLAXIS
     Dosage: 40 MG, QD
     Route: 048
     Dates: start: 20150927, end: 20151004
  102. CALCII CHLORIDUM//CALCIUM CHLORIDE [Concomitant]
     Indication: SUPPLEMENTATION THERAPY
     Dosage: 3000 MG, QD
     Route: 042
     Dates: start: 20150915, end: 20150915
  103. NIFEDIPINE. [Concomitant]
     Active Substance: NIFEDIPINE
     Dosage: 0.3 G, BID
     Route: 065
     Dates: start: 20151005
  104. FUROSEMIDE. [Concomitant]
     Active Substance: FUROSEMIDE
     Dosage: 30 MG, QD
     Route: 042
     Dates: start: 20150908, end: 20150908
  105. ALLOPURINOL. [Concomitant]
     Active Substance: ALLOPURINOL
     Indication: PROPHYLAXIS
     Dosage: 1000 MG, BID
     Route: 048
     Dates: start: 20151202
  106. MYCOPHENOLATE SODIUM [Concomitant]
     Active Substance: MYCOPHENOLATE SODIUM
     Dosage: 1080 MG/DL, UNK
     Route: 065
     Dates: start: 20150913, end: 20151005
  107. METHYLPREDNISOLONE. [Suspect]
     Active Substance: METHYLPREDNISOLONE
     Dosage: 300 MG, QD
     Route: 065
     Dates: start: 20150919, end: 20150920
  108. PREDNISONE. [Suspect]
     Active Substance: PREDNISONE
     Indication: ANTIALLERGIC THERAPY
     Dosage: 20 MG, QD
     Route: 065
     Dates: start: 20151202, end: 20151230
  109. PREDNISONE ACETATE [Concomitant]
     Active Substance: PREDNISONE ACETATE
     Indication: PRODUCT USED FOR UNKNOWN INDICATION
     Dosage: 30 MG, QD
     Route: 065
     Dates: start: 20150913
  110. ALBUMIN HUMAN [Concomitant]
     Active Substance: ALBUMIN HUMAN
     Indication: PROPHYLAXIS
     Dosage: 12500 MG, QD
     Route: 042
     Dates: start: 20150923, end: 20150928
  111. ADALAT [Concomitant]
     Active Substance: NIFEDIPINE
     Dosage: 300 MG, BID
     Route: 065
  112. PHENTOLAMINE MESILATE [Concomitant]
     Indication: HYPERTENSION
     Dosage: 5 MG, QD
     Route: 042
     Dates: start: 20150910, end: 20150910
  113. ADVACAL//CALCIUM [Concomitant]
     Indication: MINERAL SUPPLEMENTATION
     Dosage: 3000 MG, QD
     Route: 041
     Dates: start: 20150915, end: 20150915
  114. PANTOPRAZOLE [Concomitant]
     Active Substance: PANTOPRAZOLE
     Dosage: 40 MG, QD
     Route: 048
     Dates: start: 20151005, end: 20151102
  115. AMCAL VITAMIN C [Concomitant]
     Indication: VITAMIN C DEFICIENCY
     Dosage: 1000 MG, QD
     Route: 042
     Dates: start: 20150908, end: 20150916
  116. FUROSEMIDE. [Concomitant]
     Active Substance: FUROSEMIDE
     Indication: PROPHYLAXIS
     Dosage: 20 MG, QD
     Route: 042
     Dates: start: 20151004, end: 20151004
  117. FUROSEMIDE. [Concomitant]
     Active Substance: FUROSEMIDE
     Dosage: 20 MG, BID
     Route: 042
     Dates: start: 20150925, end: 20150925
  118. AK-DEX//DEXAMETHASONE SODIUM PHOSPHATE [Concomitant]
     Indication: ALLERGY PROPHYLAXIS
     Dosage: 5 MG, QD
     Route: 042
     Dates: start: 20150911, end: 20150911
  119. SULFAMETHOXAZOLE [Concomitant]
     Active Substance: SULFAMETHOXAZOLE
     Indication: LUNG INFECTION
     Dosage: 960 MG, TID
     Route: 042
     Dates: start: 20151231

REACTIONS (9)
  - Cytomegalovirus infection [Recovered/Resolved]
  - Constipation [Recovering/Resolving]
  - Cytomegalovirus infection [Recovered/Resolved]
  - Urine output decreased [Recovered/Resolved]
  - Delayed graft function [Recovered/Resolved with Sequelae]
  - Abdominal distension [Recovering/Resolving]
  - Kidney transplant rejection [Recovered/Resolved]
  - Fatigue [Recovering/Resolving]
  - Pain [Unknown]

NARRATIVE: CASE EVENT DATE: 20150910
